FAERS Safety Report 7990971-9 (Version None)
Quarter: 2011Q4

REPORT INFORMATION
  Report Type: 
  Country: None (occurrence: None)
  Receive Date: 20111219
  Receipt Date: 20111208
  Transmission Date: 20120403
  Serious: Yes (Other)
  Sender: FDA-Public Use
  Company Number: FR-ROCHE-1022469

PATIENT
  Sex: Female

DRUGS (2)
  1. SOMATROPIN [Suspect]
     Route: 058
     Dates: start: 20111114
  2. SOMATROPIN [Suspect]
     Indication: GROWTH RETARDATION
     Route: 058
     Dates: start: 20031128, end: 20110701

REACTIONS (4)
  - DYSPRAXIA [None]
  - AMYOTROPHY [None]
  - TONGUE PARALYSIS [None]
  - DYSARTHRIA [None]
